FAERS Safety Report 9162974 (Version 4)
Quarter: 2014Q1

REPORT INFORMATION
  Report Type: Spontaneous
  Country: BR (occurrence: BR)
  Receive Date: 20130314
  Receipt Date: 20140109
  Transmission Date: 20141002
  Serious: Yes (Death, Hospitalization, Other)
  Sender: FDA-Public Use
  Company Number: BR-PFIZER INC-2013063290

PATIENT
  Age: 65 Year
  Sex: Male
  Weight: 58 kg

DRUGS (3)
  1. SUTENT [Suspect]
     Indication: RENAL CELL CARCINOMA
     Dosage: 50 MG, CYCLIC (CYCLE 4 PER 2), 1X/DAY
     Route: 048
     Dates: start: 20130206, end: 201312
  2. PLASIL [Concomitant]
  3. LUFTAL [Concomitant]

REACTIONS (37)
  - Death [Fatal]
  - Red blood cell count decreased [Recovering/Resolving]
  - Ascites [Unknown]
  - Peritoneal disorder [Unknown]
  - Asthenia [Not Recovered/Not Resolved]
  - Blood potassium decreased [Unknown]
  - Abscess oral [Recovered/Resolved]
  - Pyrexia [Recovered/Resolved]
  - Mouth injury [Not Recovered/Not Resolved]
  - Gingival swelling [Not Recovered/Not Resolved]
  - Tooth disorder [Not Recovered/Not Resolved]
  - Yellow skin [Recovering/Resolving]
  - Loose tooth [Unknown]
  - Fatigue [Unknown]
  - Dysgeusia [Unknown]
  - Oral pain [Unknown]
  - Stomatitis [Recovering/Resolving]
  - Skin discolouration [Recovering/Resolving]
  - Disease progression [Unknown]
  - Renal cell carcinoma [Unknown]
  - Nausea [Not Recovered/Not Resolved]
  - Vomiting [Not Recovered/Not Resolved]
  - Flatulence [Unknown]
  - Gait disturbance [Unknown]
  - Hepatomegaly [Not Recovered/Not Resolved]
  - Oedema peripheral [Unknown]
  - Spinal pain [Not Recovered/Not Resolved]
  - Pelvic pain [Not Recovered/Not Resolved]
  - Parosmia [Unknown]
  - Feeding disorder [Unknown]
  - Decreased appetite [Unknown]
  - Activities of daily living impaired [Unknown]
  - Malaise [Unknown]
  - Abdominal pain [Not Recovered/Not Resolved]
  - Liver disorder [Not Recovered/Not Resolved]
  - Local swelling [Unknown]
  - Abdominal distension [Unknown]
